FAERS Safety Report 9176420 (Version 1)
Quarter: 2013Q1

REPORT INFORMATION
  Report Type: Spontaneous
  Country: ES (occurrence: None)
  Receive Date: 20130319
  Receipt Date: 20130319
  Transmission Date: 20140127
  Serious: Yes (Death)
  Sender: FDA-Public Use
  Company Number: ESP-LIT-2013001

PATIENT
  Sex: Male

DRUGS (5)
  1. BETAINE [Suspect]
     Indication: HOMOCYSTINURIA
     Route: 048
  2. HYDROXOCOBALAMIN [Concomitant]
  3. FOLIC ACID [Concomitant]
  4. CARNITINE [Concomitant]
  5. PYRIDOXINE [Concomitant]

REACTIONS (10)
  - Nervous system disorder [None]
  - Thrombocytopenia [None]
  - Drug ineffective [None]
  - Hypertension [None]
  - Oedema [None]
  - Hyponatraemia [None]
  - Haematuria [None]
  - Proteinuria [None]
  - Urine output decreased [None]
  - Microangiopathy [None]
